FAERS Safety Report 24985705 (Version 2)
Quarter: 2025Q3

REPORT INFORMATION
  Report Type: Spontaneous
  Country: CN (occurrence: CN)
  Receive Date: 20250219
  Receipt Date: 20250816
  Transmission Date: 20251021
  Serious: Yes (Other)
  Sender: ALEXION PHARMACEUTICALS
  Company Number: CN-AstraZeneca-2017SE18131

PATIENT
  Age: 26 Year
  Sex: Female
  Weight: 56 kg

DRUGS (2)
  1. ESOMEPRAZOLE [Suspect]
     Active Substance: ESOMEPRAZOLE
     Dosage: 1 DOSAGE FORM, BID
     Dates: start: 20160725, end: 20160726
  2. BISMUTH HYDROXIDE [Concomitant]
     Active Substance: BISMUTH HYDROXIDE

REACTIONS (6)
  - Tinnitus [Unknown]
  - Dry mouth [Unknown]
  - Dizziness [Unknown]
  - Vision blurred [Unknown]
  - Vomiting [Unknown]
  - Diarrhoea [Unknown]

NARRATIVE: CASE EVENT DATE: 20160725
